FAERS Safety Report 4424251-5 (Version None)
Quarter: 2004Q3

REPORT INFORMATION
  Report Type: 
  Country: None (occurrence: None)
  Receive Date: 20040810
  Receipt Date: 20040810
  Transmission Date: 20050211
  Serious: Yes (Other)
  Sender: FDA-Public Use
  Company Number: None

PATIENT
  Sex: Male

DRUGS (1)
  1. OXYCODONE HCL [Suspect]
     Indication: INTERVERTEBRAL DISC DEGENERATION
     Dosage: 80 MG PO BID
     Route: 048

REACTIONS (3)
  - DRUG EFFECT DECREASED [None]
  - HEADACHE [None]
  - PAIN [None]
